FAERS Safety Report 4955284-8 (Version None)
Quarter: 2006Q1

REPORT INFORMATION
  Report Type: 
  Country: None (occurrence: None)
  Receive Date: 20060328
  Receipt Date: 20060313
  Transmission Date: 20060701
  Serious: Yes (Death, Hospitalization)
  Sender: FDA-Public Use
  Company Number: FRWYE464813MAR06

PATIENT
  Age: 48 Year
  Sex: Female

DRUGS (3)
  1. ENBREL [Suspect]
     Indication: JUVENILE ARTHRITIS
     Dosage: 2 DOSES TOTAL WEEKLY
     Route: 058
     Dates: end: 20060107
  2. CORTANCYL [Suspect]
     Indication: JUVENILE ARTHRITIS
     Dosage: 10 MG TOTAL DAILY
     Route: 048
     Dates: end: 20060107
  3. BI-PROFENID [Suspect]
     Indication: JUVENILE ARTHRITIS
     Dosage: UNKNOWN
     Route: 048
     Dates: end: 20060107

REACTIONS (6)
  - ABSCESS INTESTINAL [None]
  - CARDIO-RESPIRATORY ARREST [None]
  - HYPOTENSION [None]
  - LARGE INTESTINE PERFORATION [None]
  - PERITONITIS [None]
  - SIGMOIDITIS [None]
